FAERS Safety Report 5880832-3 (Version None)
Quarter: 2008Q3

REPORT INFORMATION
  Report Type: 
  Country: None (occurrence: None)
  Receive Date: 20080912
  Receipt Date: 20080610
  Transmission Date: 20090109
  Serious: No
  Sender: FDA-Public Use
  Company Number: US-ABBOTT-08P-163-0456490-00

PATIENT
  Sex: Female
  Weight: 72.64 kg

DRUGS (4)
  1. HUMIRA [Suspect]
     Indication: PSORIASIS
     Dosage: FOR 4 WEEKS
     Route: 058
     Dates: start: 20080506, end: 20080606
  2. HUMIRA [Suspect]
     Indication: PSORIATIC ARTHROPATHY
     Dosage: NOT WITH CONSUMER - CALLED IT IN LAST NIGHT TO PRODUCT QUALITY SHIPPED REPLACEMENT
     Route: 058
     Dates: start: 20080606
  3. LISINOPRIL [Concomitant]
     Indication: HYPERTENSION
     Route: 048
     Dates: start: 20080101
  4. VARENICLINE [Concomitant]
     Route: 048
     Dates: start: 20080101

REACTIONS (2)
  - INJECTION SITE PRURITUS [None]
  - INJECTION SITE URTICARIA [None]
